FAERS Safety Report 20899243 (Version 2)
Quarter: 2022Q3

REPORT INFORMATION
  Report Type: Spontaneous
  Country: IT (occurrence: IT)
  Receive Date: 20220601
  Receipt Date: 20220916
  Transmission Date: 20221027
  Serious: Yes (Hospitalization, Other)
  Sender: FDA-Public Use
  Company Number: IT-ALKEM LABORATORIES LIMITED-IT-ALKEM-2022-05201

PATIENT
  Age: 64 Year
  Sex: Female

DRUGS (6)
  1. CEFIXIME [Interacting]
     Active Substance: CEFIXIME
     Indication: Respiratory tract infection
     Dosage: UNK
     Route: 065
  2. CARBAMAZEPINE [Interacting]
     Active Substance: CARBAMAZEPINE
     Indication: Epilepsy
     Dosage: 900 MILLIGRAM PER DAY
     Route: 065
  3. CARBAMAZEPINE [Interacting]
     Active Substance: CARBAMAZEPINE
     Dosage: UNK
     Route: 065
  4. LEVETIRACETAM [Concomitant]
     Active Substance: LEVETIRACETAM
     Indication: Epilepsy
     Dosage: 3000 MILLIGRAM PER DAY
     Route: 065
  5. LEVETIRACETAM [Concomitant]
     Active Substance: LEVETIRACETAM
     Dosage: 500 MILLIGRAM, QD
     Route: 042
  6. LEVETIRACETAM [Concomitant]
     Active Substance: LEVETIRACETAM
     Dosage: UNK
     Route: 065

REACTIONS (2)
  - Status epilepticus [Recovering/Resolving]
  - Drug interaction [Unknown]
